FAERS Safety Report 25884182 (Version 1)
Quarter: 2025Q4

REPORT INFORMATION
  Report Type: Spontaneous
  Country: US (occurrence: US)
  Receive Date: 20251006
  Receipt Date: 20251006
  Transmission Date: 20260118
  Serious: Yes (Other)
  Sender: MYLAN
  Company Number: US-MYLANLABS-2025M1084364

PATIENT
  Age: 28 Year
  Sex: Female

DRUGS (4)
  1. TRIAMCINOLONE ACETONIDE [Suspect]
     Active Substance: TRIAMCINOLONE ACETONIDE
     Indication: Congenital melanosis
     Dosage: 5 MILLIGRAM (5MG/CC)
  2. CLOBETASOL [Suspect]
     Active Substance: CLOBETASOL
     Indication: Congenital melanosis
     Dosage: UNK
  3. RUXOLITINIB [Suspect]
     Active Substance: RUXOLITINIB
     Indication: Congenital melanosis
     Dosage: UNK
  4. LOVASTATIN [Suspect]
     Active Substance: LOVASTATIN
     Indication: Congenital melanosis
     Dosage: UNK

REACTIONS (1)
  - Drug ineffective [Unknown]
